FAERS Safety Report 22930342 (Version 6)
Quarter: 2024Q1

REPORT INFORMATION
  Report Type: Report from Study
  Country: US (occurrence: US)
  Receive Date: 20230911
  Receipt Date: 20240222
  Transmission Date: 20240410
  Serious: Yes (Other)
  Sender: FDA-Public Use
  Company Number: US-MYLANLABS-2023M1074369

PATIENT
  Age: 77 Year
  Sex: Female
  Weight: 52.16 kg

DRUGS (9)
  1. GLATIRAMER ACETATE [Suspect]
     Active Substance: GLATIRAMER ACETATE
     Indication: Relapsing-remitting multiple sclerosis
     Dosage: 40 MILLIGRAM, 3XW (THREE TIMES A WEEK)
     Route: 058
  2. GLATIRAMER ACETATE [Suspect]
     Active Substance: GLATIRAMER ACETATE
     Indication: Secondary progressive multiple sclerosis
     Dosage: 40 MILLIGRAM, 3XW
     Route: 058
     Dates: start: 202306
  3. GLATIRAMER ACETATE [Suspect]
     Active Substance: GLATIRAMER ACETATE
     Indication: Multiple sclerosis
  4. DEVICE [Suspect]
     Active Substance: DEVICE
     Indication: Relapsing-remitting multiple sclerosis
     Dosage: UNK
     Route: 065
  5. DEVICE [Suspect]
     Active Substance: DEVICE
     Indication: Secondary progressive multiple sclerosis
  6. VOLTAREN [Concomitant]
     Active Substance: DICLOFENAC SODIUM
     Dosage: UNK
     Route: 065
  7. SYNTHROID [Concomitant]
     Active Substance: LEVOTHYROXINE SODIUM
     Indication: Incontinence
     Dosage: UNK
     Route: 065
  8. MAVERICK [Concomitant]
     Indication: Incontinence
     Dosage: UNK
     Route: 065
  9. AMPYRA [Concomitant]
     Active Substance: DALFAMPRIDINE
     Indication: Drug therapy
     Dosage: UNK
     Route: 065

REACTIONS (42)
  - Multiple sclerosis relapse [Unknown]
  - Paralysis [Unknown]
  - Muscular weakness [Unknown]
  - Fall [Unknown]
  - Osteoporosis [Unknown]
  - Illness [Unknown]
  - Vertigo [Unknown]
  - Gait disturbance [Unknown]
  - Tremor [Unknown]
  - Hypoaesthesia [Unknown]
  - Blood pressure abnormal [Unknown]
  - Cognitive disorder [Unknown]
  - Memory impairment [Unknown]
  - Retching [Unknown]
  - Spinal disorder [Unknown]
  - Vitamin B complex deficiency [Unknown]
  - COVID-19 [Recovered/Resolved]
  - Arthritis [Unknown]
  - Fatigue [Unknown]
  - Asthenia [Recovering/Resolving]
  - Injection site swelling [Not Recovered/Not Resolved]
  - Injection site haemorrhage [Unknown]
  - Injection site warmth [Not Recovered/Not Resolved]
  - Injection site pain [Unknown]
  - Injection site erythema [Not Recovered/Not Resolved]
  - Influenza like illness [Recovered/Resolved]
  - Injection site mass [Unknown]
  - Flushing [Unknown]
  - Dyspnoea [Unknown]
  - Nausea [Unknown]
  - Vomiting projectile [Unknown]
  - Chest pain [Unknown]
  - Headache [Unknown]
  - Erythema [Unknown]
  - Nasopharyngitis [Unknown]
  - Cough [Unknown]
  - Pyrexia [Unknown]
  - Neck pain [Unknown]
  - Drainage [Unknown]
  - Device use issue [Recovering/Resolving]
  - Device mechanical issue [Unknown]
  - Device deployment issue [Unknown]

NARRATIVE: CASE EVENT DATE: 20230717
